FAERS Safety Report 6925783-8 (Version None)
Quarter: 2010Q3

REPORT INFORMATION
  Report Type: 
  Country: None (occurrence: None)
  Receive Date: 20100816
  Receipt Date: 20100806
  Transmission Date: 20110219
  Serious: Yes (Hospitalization)
  Sender: FDA-Public Use
  Company Number: B0669420A

PATIENT
  Sex: Female

DRUGS (6)
  1. PAXIL [Suspect]
     Indication: PANIC DISORDER
     Dosage: 20MG PER DAY
  2. PAXIL [Suspect]
     Dosage: 10MG PER DAY
  3. PAXIL [Suspect]
     Dosage: 20MG PER DAY
  4. DORMICUM [Suspect]
  5. LEVOTOMIN [Concomitant]
     Dosage: 100MG PER DAY
  6. ROHYPNOL [Concomitant]
     Indication: SLEEP DISORDER
     Dosage: 3MG PER DAY

REACTIONS (4)
  - DRUG EXPOSURE DURING PREGNANCY [None]
  - FEEDING DISORDER NEONATAL [None]
  - PERSISTENT FOETAL CIRCULATION [None]
  - SOMNOLENCE [None]
